FAERS Safety Report 5723611-X (Version None)
Quarter: 2008Q2

REPORT INFORMATION
  Report Type: 
  Country: None (occurrence: None)
  Receive Date: 20080430
  Receipt Date: 20080422
  Transmission Date: 20081010
  Serious: Yes (Hospitalization, Other)
  Sender: FDA-Public Use
  Company Number: US-BRISTOL-MYERS SQUIBB COMPANY-14119853

PATIENT
  Age: 62 Year
  Sex: Male
  Weight: 53 kg

DRUGS (3)
  1. CETUXIMAB [Suspect]
     Dosage: START DATE OF FIRST COURSE:04FEB08. 98MG TOTAL DOSE ON 04MAR08
     Dates: start: 20080320, end: 20080320
  2. CISPLATIN [Suspect]
     Dosage: START DATE OF FIRST COURSE 04FEB08. 98 MG TOTAL DOSE GIVEN ON 04MAR08
     Dates: start: 20080304, end: 20080304
  3. RADIATION THERAPY [Suspect]
     Dosage: 35 DOSAGEFORM = 70 GY;NUMBER OF ALASPSED DAYS 35
     Dates: start: 20080319, end: 20080319

REACTIONS (16)
  - BACTERAEMIA [None]
  - BLOOD CREATININE INCREASED [None]
  - BLOOD POTASSIUM DECREASED [None]
  - DEHYDRATION [None]
  - DERMATITIS [None]
  - DRY SKIN [None]
  - DYSPHAGIA [None]
  - HAEMOGLOBIN DECREASED [None]
  - HYPOCALCAEMIA [None]
  - LYMPHOPENIA [None]
  - NAUSEA [None]
  - NEUTROPHIL COUNT DECREASED [None]
  - PNEUMONIA [None]
  - STOMATITIS [None]
  - WEIGHT DECREASED [None]
  - WHITE BLOOD CELL COUNT DECREASED [None]
